FAERS Safety Report 8457081-8 (Version None)
Quarter: 2012Q2

REPORT INFORMATION
  Report Type: 
  Country: None (occurrence: None)
  Receive Date: 20120621
  Receipt Date: 20120618
  Transmission Date: 20120825
  Serious: Yes (Death, Hospitalization, Other)
  Sender: FDA-Public Use
  Company Number: US-CELGENEUS-163-21880-12032111

PATIENT
  Sex: Female
  Weight: 50.394 kg

DRUGS (10)
  1. REVLIMID [Suspect]
     Indication: MULTIPLE MYELOMA
     Dosage: 25 MILLIGRAM
     Route: 048
     Dates: start: 20120124, end: 20120313
  2. BENAZEPRIL HYDROCHLORIDE [Concomitant]
     Dosage: 200 MILLIGRAM
     Route: 065
  3. DEXAMETHASONE [Suspect]
     Route: 065
  4. FERROUS FUMARATE [Concomitant]
     Dosage: 325 MILLIGRAM
     Route: 065
  5. SIMVASTATIN [Concomitant]
     Dosage: 40 MILLIGRAM
     Route: 065
  6. AMLODIPINE [Concomitant]
     Dosage: 5 MILLIGRAM
     Route: 065
  7. IRON [Concomitant]
     Route: 050
  8. CALCIUM [Concomitant]
     Dosage: 600/400
     Route: 065
  9. ASPIRIN [Concomitant]
     Dosage: 325 MILLIGRAM
     Route: 065
  10. CYTOXAN [Concomitant]
     Route: 065

REACTIONS (6)
  - SEPSIS [None]
  - DIARRHOEA [None]
  - ABDOMINAL PAIN LOWER [None]
  - VOMITING [None]
  - NAUSEA [None]
  - VENTRICULAR TACHYCARDIA [None]
